FAERS Safety Report 13769043 (Version 2)
Quarter: 2024Q2

REPORT INFORMATION
  Report Type: Spontaneous
  Country: FR (occurrence: FR)
  Receive Date: 20170719
  Receipt Date: 20240508
  Transmission Date: 20240716
  Serious: Yes (Death, Other)
  Sender: FDA-Public Use
  Company Number: None

PATIENT
  Age: 68 Year
  Sex: Male

DRUGS (3)
  1. MYCOPHENOLATE MOFETIL [Suspect]
     Active Substance: MYCOPHENOLATE MOFETIL
     Indication: Prophylaxis against transplant rejection
     Dosage: 15 MG, OD
     Route: 065
  2. TACROLIMUS [Suspect]
     Active Substance: TACROLIMUS
     Indication: Prophylaxis against transplant rejection
     Dosage: UNK
     Route: 065
  3. PREDNISOLONE [Suspect]
     Active Substance: PREDNISOLONE
     Indication: Prophylaxis against transplant rejection
     Dosage: UNK
     Route: 065

REACTIONS (10)
  - Septic shock [Fatal]
  - Diabetes mellitus [Unknown]
  - Chronic kidney disease [Unknown]
  - Cutaneous T-cell lymphoma [Unknown]
  - Bacteraemia [Unknown]
  - Skin lesion [Unknown]
  - Condition aggravated [Unknown]
  - Angiopathy [Unknown]
  - Iatrogenic injury [Unknown]
  - Staphylococcal infection [Unknown]
